FAERS Safety Report 25570782 (Version 7)
Quarter: 2025Q4

REPORT INFORMATION
  Report Type: Spontaneous
  Country: EU (occurrence: EU)
  Receive Date: 20250717
  Receipt Date: 20251215
  Transmission Date: 20260117
  Serious: Yes (Other)
  Sender: Haleon PLC
  Company Number: EU-002147023-NVSC2021DE301308

PATIENT
  Age: 77 Year
  Sex: Male
  Weight: 77 kg

DRUGS (509)
  1. DICLOFENAC DIETHYLAMINE [Suspect]
     Active Substance: DICLOFENAC DIETHYLAMINE
     Indication: Product used for unknown indication
     Dosage: UNK (2018 / UNKNOWN; UNKNOWN, ROUTE: RESPIRATORY (INHALATION)), ROUTE: UNKNOWN
  2. DICLOFENAC DIETHYLAMINE [Suspect]
     Active Substance: DICLOFENAC DIETHYLAMINE
     Dosage: UNK UNK, UNKNOWN FREQ., ROUTE: UNKNOWN
  3. DICLOFENAC DIETHYLAMINE [Suspect]
     Active Substance: DICLOFENAC DIETHYLAMINE
     Dosage: UNK, ROUTE: UNKNOWN
  4. OLMESARTAN MEDOXOMIL [Suspect]
     Active Substance: OLMESARTAN MEDOXOMIL
     Indication: Product used for unknown indication
     Dosage: 1000 IU
  5. OLMESARTAN MEDOXOMIL [Suspect]
     Active Substance: OLMESARTAN MEDOXOMIL
     Dosage: UNK UNK, UNKNOWN
  6. OLMESARTAN MEDOXOMIL [Suspect]
     Active Substance: OLMESARTAN MEDOXOMIL
     Dosage: 500 IU, Q12H
  7. OLMESARTAN MEDOXOMIL [Suspect]
     Active Substance: OLMESARTAN MEDOXOMIL
     Dosage: 2000 IU, QD
  8. GINKGO [Suspect]
     Active Substance: GINKGO
     Indication: Product used for unknown indication
     Dosage: 1000 MG, QD (NK, STRENGTH: 500) BID (1-0-1)BID)
  9. GINKGO [Suspect]
     Active Substance: GINKGO
     Dosage: UNK, BID
  10. BIOTIN [Suspect]
     Active Substance: BIOTIN
     Indication: Product used for unknown indication
     Dosage: UNK, ROA: UNKNOWN
  11. DICLOFENAC [Suspect]
     Active Substance: DICLOFENAC
     Indication: Product used for unknown indication
     Dosage: UNK
  12. DICLOFENAC [Suspect]
     Active Substance: DICLOFENAC
     Dosage: UNK
  13. DICLOFENAC [Suspect]
     Active Substance: DICLOFENAC
     Dosage: 2018 / UNKNOWN; UNKNOWN, ROUTE: UNKNOWN
  14. PANTOTHENIC ACID [Suspect]
     Active Substance: PANTOTHENIC ACID
     Indication: Product used for unknown indication
     Dosage: ROUTE: RESPIRATORY (INHALATION), SINCE 2018
  15. PANTOTHENIC ACID [Suspect]
     Active Substance: PANTOTHENIC ACID
     Indication: Product used for unknown indication
     Dosage: UNK
  16. CALCIUM PANTOTHENATE [Suspect]
     Active Substance: CALCIUM PANTOTHENATE
     Indication: Product used for unknown indication
     Dosage: UNK
  17. BISOPROLOL [Suspect]
     Active Substance: BISOPROLOL
     Indication: Product used for unknown indication
     Dosage: 1 DOSAGE FORM, QW, ROUTE: RESPIRATORY (INHALATION), LAST ADMIN DATE: 2020-12-10
  18. BISOPROLOL [Suspect]
     Active Substance: BISOPROLOL
     Dosage: UNK, QD (1-0-0), UNKNOWN ROUTE, FIRST ADMIN DATE: 2020-12-10
  19. BISOPROLOL [Suspect]
     Active Substance: BISOPROLOL
     Dosage: UNK, QD, ROUTE: UNKNOWN
  20. BISOPROLOL [Suspect]
     Active Substance: BISOPROLOL
     Dosage: 1 DOSAGE FORM, QW, ROUTE: RESPIRATORY (INHALATION), LAST ADMIN DATE: 2020-12-10
  21. BISOPROLOL [Suspect]
     Active Substance: BISOPROLOL
     Dosage: UNK, DAILY, QD (1-0-0)RESPIRATORY (INHALATION)
  22. MAGNESIUM ASPARTATE [Suspect]
     Active Substance: MAGNESIUM ASPARTATE
     Indication: Product used for unknown indication
     Dosage: UNK UNK, BID (STRENGTH 500)
  23. MAGNESIUM ASPARTATE [Suspect]
     Active Substance: MAGNESIUM ASPARTATE
     Indication: Product used for unknown indication
     Dosage: 500 MG, BID 1-0-1
  24. MAGNESIUM ASPARTATE [Suspect]
     Active Substance: MAGNESIUM ASPARTATE
     Dosage: BID (STRENGTH 500)
  25. MAGNESIUM ASPARTATE [Suspect]
     Active Substance: MAGNESIUM ASPARTATE
     Dosage: ROUTE: UNKNOWN
  26. MAGNESIUM ASPARTATE [Suspect]
     Active Substance: MAGNESIUM ASPARTATE
     Dosage: UNK UNK, BID (STRENGTH 500)
  27. MAGNESIUM ASPARTATE [Suspect]
     Active Substance: MAGNESIUM ASPARTATE
     Dosage: 1000 MG, BID (INTERVAL: 1 DAY) (UNK, STRENGTH: 500)
  28. MAGNESIUM ASPARTATE [Suspect]
     Active Substance: MAGNESIUM ASPARTATE
     Dosage: 1000 MG
  29. MAGNESIUM ASPARTATE [Suspect]
     Active Substance: MAGNESIUM ASPARTATE
     Dosage: UNK
  30. TAMSULOSIN HYDROCHLORIDE [Suspect]
     Active Substance: TAMSULOSIN HYDROCHLORIDE
     Indication: Product used for unknown indication
     Dosage: UNK, ROUTE: UNKNOWN
  31. TAMSULOSIN HYDROCHLORIDE [Suspect]
     Active Substance: TAMSULOSIN HYDROCHLORIDE
     Dosage: UNK, ROUTE: UNKNOWN
  32. TAMSULOSIN HYDROCHLORIDE [Suspect]
     Active Substance: TAMSULOSIN HYDROCHLORIDE
     Dosage: UNK UNK, UNKNOWN FREQ.
  33. TAMSULOSIN HYDROCHLORIDE [Suspect]
     Active Substance: TAMSULOSIN HYDROCHLORIDE
     Dosage: UNK UNK, UNKNOWN FREQ.
  34. TAMSULOSIN HYDROCHLORIDE [Suspect]
     Active Substance: TAMSULOSIN HYDROCHLORIDE
     Dosage: UNK
  35. TAMSULOSIN HYDROCHLORIDE [Suspect]
     Active Substance: TAMSULOSIN HYDROCHLORIDE
     Dosage: UNK UNK, UNKNOWN FREQ.
  36. MAGNESIUM ASPARTATE\POTASSIUM ASPARTATE [Suspect]
     Active Substance: MAGNESIUM ASPARTATE\POTASSIUM ASPARTATE
     Indication: Product used for unknown indication
     Dosage: PATIENT ROA: UNK
  37. MAGNESIUM ASPARTATE\POTASSIUM ASPARTATE [Suspect]
     Active Substance: MAGNESIUM ASPARTATE\POTASSIUM ASPARTATE
     Dosage: PATIENT ROA: UNK
  38. MAGNESIUM ASPARTATE\POTASSIUM ASPARTATE [Suspect]
     Active Substance: MAGNESIUM ASPARTATE\POTASSIUM ASPARTATE
     Dosage: UNK, ROUTE: UNKNOWN
  39. VITAMIN D [Suspect]
     Active Substance: VITAMIN D NOS
     Indication: Product used for unknown indication
     Dosage: 2000 IU, QW
  40. VITAMIN D [Suspect]
     Active Substance: VITAMIN D NOS
     Dosage: 2000 IU, QW
  41. VITAMIN D [Suspect]
     Active Substance: VITAMIN D NOS
     Dosage: 20000 IU, QW
  42. MOMETASONE FUROATE [Suspect]
     Active Substance: MOMETASONE FUROATE
     Indication: Product used for unknown indication
     Dosage: 2 PUFF(S), BID (2 PUFFS (1-0-1)), ROUTE: UNKNOWN
  43. MOMETASONE FUROATE [Suspect]
     Active Substance: MOMETASONE FUROATE
     Dosage: 2 DOSAGE FORM, DAILY(1 IN 0.5 DAY), ROUTE: UNKNOWN
  44. MOMETASONE FUROATE [Suspect]
     Active Substance: MOMETASONE FUROATE
     Dosage: 2 DF, TWICE DAILY (2 DOSAGE FORM, BID (2 PUFF(S), BID 1-0-1)/AS NEEDED (2 PUFFS), ROUTE: UNKNOWN
  45. MOMETASONE FUROATE [Suspect]
     Active Substance: MOMETASONE FUROATE
     Dosage: DAILY 2 PUFF(S), BID, ROUTE: UNKNOWN
  46. MOMETASONE FUROATE [Suspect]
     Active Substance: MOMETASONE FUROATE
     Dosage: UNK UNK, DAILY 2 PUFF(S), BID 1-0-1, ROUTE: UNKNOWN
  47. MOMETASONE FUROATE [Suspect]
     Active Substance: MOMETASONE FUROATE
     Dosage: 2 DOSAGE FORM, BID (2 PUFF(S), BID 1-0-1), ROUTE: UNKNOWN
  48. MOMETASONE FUROATE [Suspect]
     Active Substance: MOMETASONE FUROATE
     Dosage: 2 PUFFS (1-0-1), ROUTE: UNKNOWN
  49. MOMETASONE FUROATE [Suspect]
     Active Substance: MOMETASONE FUROATE
     Dosage: 2 DOSAGE FORM, Q12H, ROUTE: UNKNOWN
  50. MOMETASONE FUROATE [Suspect]
     Active Substance: MOMETASONE FUROATE
     Dosage: 2 PUFF(S), BID (2 PUFFS (1-0-1))
  51. MOMETASONE FUROATE [Suspect]
     Active Substance: MOMETASONE FUROATE
     Dosage: 2 PUFF(S), BID (2 PUFFS (1-0-1)), ROUTE: UNKNOWN
  52. MOMETASONE FUROATE [Suspect]
     Active Substance: MOMETASONE FUROATE
     Dosage: 2 PUFFS (1-0-1)
  53. MOMETASONE FUROATE [Suspect]
     Active Substance: MOMETASONE FUROATE
     Dosage: UNK UNK, DAILY 2 PUFF(S), BID 1-0-1
  54. VOLTAREN [Suspect]
     Active Substance: DICLOFENAC SODIUM
     Indication: Product used for unknown indication
     Dosage: UNK
  55. VOLTAREN [Suspect]
     Active Substance: DICLOFENAC SODIUM
     Indication: Product used for unknown indication
  56. MAGNESIUM OROTATE [Suspect]
     Active Substance: MAGNESIUM OROTATE
     Indication: Product used for unknown indication
     Dosage: UNK, UNKNOWN (3-2-3)
  57. MAGNESIUM OROTATE [Suspect]
     Active Substance: MAGNESIUM OROTATE
     Indication: Product used for unknown indication
     Dosage: UNK (UNKNOWN (3-2-3)), ROUTE UNKNOWN
  58. MAGNESIUM OROTATE [Suspect]
     Active Substance: MAGNESIUM OROTATE
     Dosage: UNK, UNKNOWN (3-2-3)
  59. MAGNESIUM OROTATE [Suspect]
     Active Substance: MAGNESIUM OROTATE
     Dosage: UNK
  60. IBUPROFEN [Suspect]
     Active Substance: IBUPROFEN
     Indication: Product used for unknown indication
     Dosage: UNK, PRN
  61. IBUPROFEN [Suspect]
     Active Substance: IBUPROFEN
     Indication: Product used for unknown indication
     Dosage: UNK UNK, AS NEEDED (PRN)
  62. IBUPROFEN [Suspect]
     Active Substance: IBUPROFEN
     Dosage: UNK
  63. IBUPROFEN [Suspect]
     Active Substance: IBUPROFEN
     Dosage: UNK UNK, AS NEEDED (PRN)
  64. IBUPROFEN [Suspect]
     Active Substance: IBUPROFEN
     Dosage: UNK, PRN
  65. IBUPROFEN [Suspect]
     Active Substance: IBUPROFEN
     Dosage: UNK UNK, AS NEEDED (PRN),AS NECESSARY
  66. IBUPROFEN [Suspect]
     Active Substance: IBUPROFEN
     Dosage: UNK, PRN
  67. IBUPROFEN [Suspect]
     Active Substance: IBUPROFEN
     Dosage: UNK UNK, AS NEEDED (PRN)
  68. ALBUTEROL [Suspect]
     Active Substance: ALBUTEROL
     Indication: Secretion discharge
     Dosage: UNK
  69. ALBUTEROL [Suspect]
     Active Substance: ALBUTEROL
     Dosage: UNK RESPIRATORY (INHALATION)
  70. ALBUTEROL [Suspect]
     Active Substance: ALBUTEROL
     Dosage: UNK
  71. CALCIUM CARBONATE [Suspect]
     Active Substance: CALCIUM CARBONATE
     Indication: Product used for unknown indication
     Dosage: 500 MG, ONCE EVERY 12HREFFERVESCENT TABLET
  72. CALCIUM CARBONATE [Suspect]
     Active Substance: CALCIUM CARBONATE
     Dosage: 1000 MG, INTERVAL 36 HOURSEFFERVESCENT TABLET
  73. ASPIRIN [Suspect]
     Active Substance: ASPIRIN
     Indication: Product used for unknown indication
     Dosage: UNK UNK, UNKNOWN (STRENGTH: 100)
  74. ASPIRIN [Suspect]
     Active Substance: ASPIRIN
     Dosage: UNK UNK, UNKNOWN (STRENGTH: 100)
  75. ASPIRIN [Suspect]
     Active Substance: ASPIRIN
     Dosage: UNK UNK, UNKNOWN (STRENGTH: 100)
  76. ROSUVASTATIN CALCIUM [Suspect]
     Active Substance: ROSUVASTATIN CALCIUM
     Indication: Product used for unknown indication
     Dosage: UNK
  77. ROSUVASTATIN CALCIUM [Suspect]
     Active Substance: ROSUVASTATIN CALCIUM
  78. ROSUVASTATIN CALCIUM [Suspect]
     Active Substance: ROSUVASTATIN CALCIUM
     Dosage: UNK
  79. ROSUVASTATIN CALCIUM [Suspect]
     Active Substance: ROSUVASTATIN CALCIUM
     Dosage: UNK UNK, UNKNOWN
  80. GINKGO [Suspect]
     Active Substance: GINKGO
     Indication: Product used for unknown indication
     Dosage: UNK, STRENGTH: 500) BID (1-0-1) BID
  81. SOAP [Suspect]
     Active Substance: SOAP
     Indication: Bronchitis
     Dosage: QD
  82. SOAP [Suspect]
     Active Substance: SOAP
     Indication: Cough
     Dosage: UNK UNK, THRICE DAILY (CUTANEOUS EMULSION)
  83. SOAP [Suspect]
     Active Substance: SOAP
     Indication: Pneumothorax
     Dosage: TID CUTANEOUS EMULSION
  84. SOAP [Suspect]
     Active Substance: SOAP
     Indication: Product used for unknown indication
     Dosage: 10 GTT DROPS, QD
  85. SOAP [Suspect]
     Active Substance: SOAP
     Indication: Asthma
     Dosage: UNK, UNKNOWN, SHAMPOO
  86. SOAP [Suspect]
     Active Substance: SOAP
     Indication: Nasopharyngitis
     Dosage: CUTANEOUS EMULSION
  87. SOAP [Suspect]
     Active Substance: SOAP
     Indication: Secretion discharge
     Dosage: UNK (ASTHMA, DYSPNEA, HOARSENESS, MUCOUS DISCHARGE, TENSION PNEUMOTHORAX, COLD, COUGH)
  88. SOAP [Suspect]
     Active Substance: SOAP
     Indication: Dyspnoea
     Dosage: 10 GTT DROPS, QD
  89. SOAP [Suspect]
     Active Substance: SOAP
     Indication: Dysphonia
     Dosage: UNK UNK, ONCE DAILY(10 GTT DROPS, QD)
  90. SOAP [Suspect]
     Active Substance: SOAP
     Indication: Nasopharyngitis
     Dosage: UNK, TID
  91. SOAP [Suspect]
     Active Substance: SOAP
     Dosage: Q3W
  92. CALCIUM CARBONATE [Suspect]
     Active Substance: CALCIUM CARBONATE
     Indication: Product used for unknown indication
     Dosage: UNK, UNKNOWN
  93. CALCIUM CARBONATE [Suspect]
     Active Substance: CALCIUM CARBONATE
     Dosage: UNK, UNKNOWN
  94. MOMETASONE [Suspect]
     Active Substance: MOMETASONE
     Indication: Product used for unknown indication
     Dosage: UNK (LOTION) (MOMETASON HEXAL NASAL SPRAY)
  95. MOMETASONE [Suspect]
     Active Substance: MOMETASONE
     Dosage: 2 DOSAGE FORM, QD ((2 DF, QD,(2 DOSAGE FORM, DAILY(1 IN 0.5 DAY))
  96. MOMETASONE [Suspect]
     Active Substance: MOMETASONE
     Dosage: 2 DOSAGE FORM, BID (LOTION)
  97. MOMETASONE [Suspect]
     Active Substance: MOMETASONE
     Indication: Product used for unknown indication
     Dosage: 2 DOSAGE FORM, Q12H(2 PUFFS BID), ROUTE: UNKNOWN
  98. ASPIRIN [Suspect]
     Active Substance: ASPIRIN
     Indication: Product used for unknown indication
     Dosage: ROUTE: UNKNOWN
  99. ASPIRIN [Suspect]
     Active Substance: ASPIRIN
     Indication: Product used for unknown indication
     Dosage: UNK UNK, UNKNOWN FREQ.(UNK UNK, UNKNOWN ROUTE (STRENGTH: 100))
  100. ASPIRIN [Suspect]
     Active Substance: ASPIRIN
     Dosage: UNK
  101. ASPIRIN [Suspect]
     Active Substance: ASPIRIN
     Dosage: UNK
  102. MOMETASONE [Suspect]
     Active Substance: MOMETASONE
     Indication: Product used for unknown indication
     Dosage: UNK, PRN (AS NEEDED)
  103. MOMETASONE [Suspect]
     Active Substance: MOMETASONE
     Dosage: UNK
  104. MOMETASONE [Suspect]
     Active Substance: MOMETASONE
     Indication: Product used for unknown indication
     Dosage: UNK
  105. HERBALS [Suspect]
     Active Substance: HERBALS
     Indication: Product used for unknown indication
     Dosage: UNK
  106. HERBALS [Suspect]
     Active Substance: HERBALS
     Indication: Product used for unknown indication
     Dosage: UNK
  107. HERBALS [Suspect]
     Active Substance: HERBALS
     Dosage: UNK UNK, UNKNOWN
  108. HERBALS [Suspect]
     Active Substance: HERBALS
     Dosage: UNK
  109. HERBALS [Suspect]
     Active Substance: HERBALS
     Dosage: UNK
  110. HERBALS [Suspect]
     Active Substance: HERBALS
     Dosage: UNK
  111. HERBALS [Suspect]
     Active Substance: HERBALS
     Dosage: UNK
  112. HERBALS [Suspect]
     Active Substance: HERBALS
     Dosage: UNK UNK, UNKNOWN
  113. HERBALS [Suspect]
     Active Substance: HERBALS
     Dosage: UNK
  114. HERBALS [Suspect]
     Active Substance: HERBALS
     Dosage: UNK UNK, UNKNOWN ROUTE
  115. HERBALS [Suspect]
     Active Substance: HERBALS
     Dosage: UNK UNK, UNKNOWN
  116. PRALUENT [Suspect]
     Active Substance: ALIROCUMAB
     Indication: Product used for unknown indication
     Dosage: 75 UNK
  117. PRALUENT [Suspect]
     Active Substance: ALIROCUMAB
     Indication: Product used for unknown indication
     Dosage: UNK UNK, UNKNOWN 75 UNK
  118. PRALUENT [Suspect]
     Active Substance: ALIROCUMAB
     Dosage: UNK UNK, UNKNOWN 75 UNK
  119. PRALUENT [Suspect]
     Active Substance: ALIROCUMAB
     Dosage: UNK UNK, UNKNOWN 75 UNK
  120. PRALUENT [Suspect]
     Active Substance: ALIROCUMAB
     Dosage: UNK UNK, UNKNOWN 75 UNK
  121. PRALUENT [Suspect]
     Active Substance: ALIROCUMAB
     Dosage: UNK UNK, UNKNOWN 75 UNK
  122. PRALUENT [Suspect]
     Active Substance: ALIROCUMAB
     Dosage: UNK UNK, UNKNOWN 75 UNK
  123. CLOPIDOGREL BESILATE [Suspect]
     Active Substance: CLOPIDOGREL BESILATE
     Indication: Product used for unknown indication
     Dosage: ROUTE: UNKNOWN
  124. BIOTIN [Suspect]
     Active Substance: BIOTIN
     Indication: Product used for unknown indication
     Dosage: 1 DF, QD
  125. BIOTIN [Suspect]
     Active Substance: BIOTIN
     Indication: Dysphonia
     Dosage: 1 DF, QD, ROUTE: UNKNOWN
  126. BIOTIN [Suspect]
     Active Substance: BIOTIN
     Indication: Product used for unknown indication
     Dosage: UNK, QD (ROUTE: UNKNOWN), ROUTE: UNKNOWN
  127. BIOTIN [Suspect]
     Active Substance: BIOTIN
     Indication: Dysphonia
     Dosage: 1 DOSAGE FORM, ROUTE: UNKNOWN
  128. BIOTIN [Suspect]
     Active Substance: BIOTIN
     Indication: Dysphonia
     Dosage: 1 DOSAGE FORM, DAILY, ROUTE: UNKNOWN
  129. BIOTIN [Suspect]
     Active Substance: BIOTIN
     Indication: Chest discomfort
     Dosage: 1 DF, ONCE DAILY (STRENGTH 100), ROUTE: UNKNOWN
  130. BIOTIN [Suspect]
     Active Substance: BIOTIN
     Indication: Pneumothorax
     Dosage: 1 DOSAGE FORM, QD, ROUTE: UNKNOWN
  131. BIOTIN [Suspect]
     Active Substance: BIOTIN
     Indication: Product used for unknown indication
     Dosage: UNK
  132. BIOTIN [Suspect]
     Active Substance: BIOTIN
     Indication: Product used for unknown indication
     Dosage: UNK
  133. BIOTIN [Suspect]
     Active Substance: BIOTIN
     Indication: Product used for unknown indication
     Dosage: UNK
  134. BIOTIN [Suspect]
     Active Substance: BIOTIN
     Indication: Cough
     Dosage: UNK
  135. BIOTIN [Suspect]
     Active Substance: BIOTIN
     Indication: Product used for unknown indication
     Dosage: UNK
  136. BIOTIN [Suspect]
     Active Substance: BIOTIN
     Indication: Secretion discharge
     Dosage: UNK
  137. BIOTIN [Suspect]
     Active Substance: BIOTIN
     Indication: Cough
     Dosage: UNK
  138. BIOTIN [Suspect]
     Active Substance: BIOTIN
     Indication: Chest discomfort
     Dosage: UNK
  139. BIOTIN [Suspect]
     Active Substance: BIOTIN
     Indication: Bronchitis
     Dosage: UNK
  140. BIOTIN [Suspect]
     Active Substance: BIOTIN
     Indication: Nasopharyngitis
     Dosage: UNK
  141. BIOTIN [Suspect]
     Active Substance: BIOTIN
     Indication: Product used for unknown indication
     Dosage: UNK
  142. BIOTIN [Suspect]
     Active Substance: BIOTIN
     Indication: Dyspnoea
     Dosage: UNK
  143. BIOTIN [Suspect]
     Active Substance: BIOTIN
     Indication: Pneumothorax
     Dosage: UNK
  144. BIOTIN [Suspect]
     Active Substance: BIOTIN
     Indication: Dysphonia
     Dosage: UNK
  145. BIOTIN [Suspect]
     Active Substance: BIOTIN
     Indication: Asthma
     Dosage: 1000 MILLIGRAM, UNK
  146. BIOTIN [Suspect]
     Active Substance: BIOTIN
     Dosage: 20000 INTERNATIONAL UNIT
  147. BIOTIN [Suspect]
     Active Substance: BIOTIN
     Dosage: UNK
  148. BIOTIN [Suspect]
     Active Substance: BIOTIN
     Dosage: UNK
  149. BIOTIN [Suspect]
     Active Substance: BIOTIN
     Dosage: UNK
  150. BIOTIN [Suspect]
     Active Substance: BIOTIN
     Dosage: UNK
  151. BIOTIN [Suspect]
     Active Substance: BIOTIN
     Dosage: ROUTE: UNKNOWN
  152. BIOTIN [Suspect]
     Active Substance: BIOTIN
     Dosage: UNK
  153. BIOTIN [Suspect]
     Active Substance: BIOTIN
     Dosage: UNK
  154. BIOTIN [Suspect]
     Active Substance: BIOTIN
     Dosage: UNK
  155. BIOTIN [Suspect]
     Active Substance: BIOTIN
     Dosage: UNK
  156. BIOTIN [Suspect]
     Active Substance: BIOTIN
     Dosage: UNK
  157. BIOTIN [Suspect]
     Active Substance: BIOTIN
     Dosage: UNK
  158. BIOTIN [Suspect]
     Active Substance: BIOTIN
     Dosage: UNK
  159. BIOTIN [Suspect]
     Active Substance: BIOTIN
     Dosage: UNK
  160. BIOTIN [Suspect]
     Active Substance: BIOTIN
     Dosage: UNK
  161. BIOTIN [Suspect]
     Active Substance: BIOTIN
     Dosage: UNK
  162. BIOTIN [Suspect]
     Active Substance: BIOTIN
     Dosage: UNK
  163. BIOTIN [Suspect]
     Active Substance: BIOTIN
     Dosage: UNK
  164. BIOTIN [Suspect]
     Active Substance: BIOTIN
     Dosage: UNK
  165. BIOTIN [Suspect]
     Active Substance: BIOTIN
     Dosage: 2000 INTERNATIONAL UNIT, UNK
  166. XARELTO [Suspect]
     Active Substance: RIVAROXABAN
     Indication: Product used for unknown indication
     Dosage: UNK
  167. XARELTO [Suspect]
     Active Substance: RIVAROXABAN
     Indication: Product used for unknown indication
     Dosage: UNK, UNKNOWN
  168. XARELTO [Suspect]
     Active Substance: RIVAROXABAN
     Dosage: UNK
  169. XARELTO [Suspect]
     Active Substance: RIVAROXABAN
     Dosage: UNK
  170. XARELTO [Suspect]
     Active Substance: RIVAROXABAN
     Dosage: UNK
  171. XARELTO [Suspect]
     Active Substance: RIVAROXABAN
     Dosage: UNK, UNKNOWN
  172. XARELTO [Suspect]
     Active Substance: RIVAROXABAN
     Dosage: UNK
  173. XARELTO [Suspect]
     Active Substance: RIVAROXABAN
     Dosage: UNK, UNKNOWN
  174. XARELTO [Suspect]
     Active Substance: RIVAROXABAN
     Dosage: UNK
  175. XARELTO [Suspect]
     Active Substance: RIVAROXABAN
     Dosage: UNK, ROUTE: UNKNOWN
  176. XARELTO [Suspect]
     Active Substance: RIVAROXABAN
     Dosage: UNK
  177. AMBROXOL HYDROCHLORIDE [Suspect]
     Active Substance: AMBROXOL HYDROCHLORIDE
     Indication: Product used for unknown indication
     Dosage: UNK, UNKNOWN
  178. AMBROXOL HYDROCHLORIDE [Suspect]
     Active Substance: AMBROXOL HYDROCHLORIDE
     Indication: Product used for unknown indication
     Dosage: UNK, UNKNOWN ROUTE
  179. AMBROXOL HYDROCHLORIDE [Suspect]
     Active Substance: AMBROXOL HYDROCHLORIDE
     Dosage: UNK, UNKNOWN
  180. AMBROXOL HYDROCHLORIDE [Suspect]
     Active Substance: AMBROXOL HYDROCHLORIDE
     Dosage: UNK UNK, UNKNOWN FREQ RESPIRATORY (INHALATION)
  181. AMBROXOL HYDROCHLORIDE [Suspect]
     Active Substance: AMBROXOL HYDROCHLORIDE
     Dosage: UNK RESPIRATORY (INHALATION)
  182. AMBROXOL HYDROCHLORIDE [Suspect]
     Active Substance: AMBROXOL HYDROCHLORIDE
     Dosage: UNK UNK, UNKNOWN FREQ. RESPIRATORY (INHALATION)
  183. .ALPHA.-TOCOPHEROL ACETATE [Suspect]
     Active Substance: .ALPHA.-TOCOPHEROL ACETATE
     Indication: Product used for unknown indication
     Dosage: 2000 IU, WE (2000 IU, QW), ROUTE: UNKNOWN
  184. .ALPHA.-TOCOPHEROL ACETATE [Suspect]
     Active Substance: .ALPHA.-TOCOPHEROL ACETATE
     Dosage: 1 DF, WE (1 DF, QW), ROUTE: UNKNOWN
  185. IBUPROFEN [Suspect]
     Active Substance: IBUPROFEN
     Indication: Product used for unknown indication
     Dosage: UNK, PRN
  186. IBUPROFEN [Suspect]
     Active Substance: IBUPROFEN
     Dosage: UNK UNK, PRN
  187. IBUPROFEN [Suspect]
     Active Substance: IBUPROFEN
     Dosage: UNK, PRN
  188. IBUPROFEN [Suspect]
     Active Substance: IBUPROFEN
     Dosage: UNK UNK, PRN
  189. IBUPROFEN [Suspect]
     Active Substance: IBUPROFEN
     Dosage: UNK
  190. IBUPROFEN [Suspect]
     Active Substance: IBUPROFEN
     Dosage: UNK UNK, PRN
  191. IBUPROFEN [Suspect]
     Active Substance: IBUPROFEN
     Dosage: UNK, PRN
  192. IBUPROFEN [Suspect]
     Active Substance: IBUPROFEN
     Dosage: UNK
  193. IBUPROFEN [Suspect]
     Active Substance: IBUPROFEN
     Dosage: UNK
  194. ATROVENT [Suspect]
     Active Substance: IPRATROPIUM BROMIDE
     Indication: Dyspnoea
     Dosage: UNK
  195. ATROVENT [Suspect]
     Active Substance: IPRATROPIUM BROMIDE
     Indication: Cough
     Dosage: RESPIRATORY (INHALATION)
  196. ATROVENT [Suspect]
     Active Substance: IPRATROPIUM BROMIDE
     Indication: Pneumothorax
     Dosage: UNK
  197. ATROVENT [Suspect]
     Active Substance: IPRATROPIUM BROMIDE
     Indication: Secretion discharge
     Dosage: UNK UNK, UNKNOWN
  198. ATROVENT [Suspect]
     Active Substance: IPRATROPIUM BROMIDE
     Indication: Nasopharyngitis
     Dosage: UNK UNK, UNKNOWN
  199. ATROVENT [Suspect]
     Active Substance: IPRATROPIUM BROMIDE
     Indication: Pneumothorax
     Dosage: RESPIRATORY (INHALATION)
  200. ATROVENT [Suspect]
     Active Substance: IPRATROPIUM BROMIDE
     Indication: Nasopharyngitis
     Dosage: UNK UNK, UNKNOWN
  201. ATROVENT [Suspect]
     Active Substance: IPRATROPIUM BROMIDE
     Indication: Dysphonia
     Dosage: UNK UNK, UNKNOWN
  202. ATROVENT [Suspect]
     Active Substance: IPRATROPIUM BROMIDE
     Indication: Secretion discharge
  203. ATROVENT [Suspect]
     Active Substance: IPRATROPIUM BROMIDE
     Indication: Cough
  204. ATROVENT [Suspect]
     Active Substance: IPRATROPIUM BROMIDE
     Indication: Chest discomfort
  205. ATROVENT [Suspect]
     Active Substance: IPRATROPIUM BROMIDE
     Indication: Chest discomfort
  206. CALCIUM PANTOTHENATE [Suspect]
     Active Substance: CALCIUM PANTOTHENATE
     Indication: Product used for unknown indication
     Dosage: UNK (EVERY 0.3 DAY)
  207. CALCIUM PANTOTHENATE [Suspect]
     Active Substance: CALCIUM PANTOTHENATE
     Dosage: UNK UNK, QD (UNKNOWN (2-0-1) TID)
  208. CALCIUM PANTOTHENATE [Suspect]
     Active Substance: CALCIUM PANTOTHENATE
     Dosage: UNK UNK, THRICE DAILY ((2-0-1) TID)
  209. CALCIUM PANTOTHENATE [Suspect]
     Active Substance: CALCIUM PANTOTHENATE
     Dosage: UNK, ROUTE: UNKNOWN
  210. CALCIUM PANTOTHENATE [Suspect]
     Active Substance: CALCIUM PANTOTHENATE
     Dosage: UNK, EVERY 8 HRS, ROUTE: UNKNOWN
  211. MOMETASONE FUROATE [Suspect]
     Active Substance: MOMETASONE FUROATE
     Indication: Product used for unknown indication
     Dosage: UNK
  212. MOMETASONE FUROATE [Suspect]
     Active Substance: MOMETASONE FUROATE
     Indication: Product used for unknown indication
     Dosage: UNK
  213. MOMETASONE FUROATE [Suspect]
     Active Substance: MOMETASONE FUROATE
     Dosage: 2 DF (1 DF IN 0.5 DAY)
  214. MOMETASONE FUROATE [Suspect]
     Active Substance: MOMETASONE FUROATE
     Dosage: UNK UNK, UNKNOWN FREQ.
  215. MOMETASONE FUROATE [Suspect]
     Active Substance: MOMETASONE FUROATE
     Dosage: 2 PUFFS, TWICE DAILY (1-0-1)
  216. OLMESARTAN MEDOXOMIL [Suspect]
     Active Substance: OLMESARTAN MEDOXOMIL
     Indication: Product used for unknown indication
     Dosage: 2000 IU, BID
  217. OLMESARTAN MEDOXOMIL [Suspect]
     Active Substance: OLMESARTAN MEDOXOMIL
     Indication: Product used for unknown indication
     Dosage: 500 IU, Q12H, ROUTE: UNKNOWN
  218. OLMESARTAN MEDOXOMIL [Suspect]
     Active Substance: OLMESARTAN MEDOXOMIL
     Dosage: 1000 IU, ROUTE: UNKNOWN
  219. OLMESARTAN MEDOXOMIL [Suspect]
     Active Substance: OLMESARTAN MEDOXOMIL
     Dosage: 2000 INTERNATIONAL UNIT, BID, ROUTE: UNKNOWN
  220. OLMESARTAN MEDOXOMIL [Suspect]
     Active Substance: OLMESARTAN MEDOXOMIL
     Dosage: 1000 INTERNATIONAL UNIT, BID, ROUTE: UNKNOWN
  221. OLMESARTAN MEDOXOMIL [Suspect]
     Active Substance: OLMESARTAN MEDOXOMIL
     Dosage: 500 INTERNATIONAL UNIT, BID, ROUTE: UNKNOWN
  222. OLMESARTAN MEDOXOMIL [Suspect]
     Active Substance: OLMESARTAN MEDOXOMIL
     Dosage: 1000 INTERNATIONAL UNIT, BID
  223. OLMESARTAN MEDOXOMIL [Suspect]
     Active Substance: OLMESARTAN MEDOXOMIL
     Dosage: 1000 INTERNATIONAL UNIT, BID
  224. OLMESARTAN MEDOXOMIL [Suspect]
     Active Substance: OLMESARTAN MEDOXOMIL
     Dosage: 500 IU, Q12HUNK UNK, UNKNOWN (STRENGTH 10)
  225. OLMESARTAN MEDOXOMIL [Suspect]
     Active Substance: OLMESARTAN MEDOXOMIL
     Dosage: 1000 INTERNATIONAL UNIT
  226. OLMESARTAN MEDOXOMIL [Suspect]
     Active Substance: OLMESARTAN MEDOXOMIL
     Dosage: 2000 UNK
  227. OLMESARTAN MEDOXOMIL [Suspect]
     Active Substance: OLMESARTAN MEDOXOMIL
     Dosage: 2000 INTERNATIONAL UNIT
  228. OLMESARTAN MEDOXOMIL [Suspect]
     Active Substance: OLMESARTAN MEDOXOMIL
     Dosage: 500 INTERNATIONAL UNIT, BID
  229. OLMESARTAN MEDOXOMIL [Suspect]
     Active Substance: OLMESARTAN MEDOXOMIL
     Dosage: 1000 INTERNATIONAL UNIT, BID
  230. OLMESARTAN MEDOXOMIL [Suspect]
     Active Substance: OLMESARTAN MEDOXOMIL
     Dosage: 500 INTERNATIONAL UNIT, Q12H, UNK UNK, UNKNOWN
  231. OLMESARTAN MEDOXOMIL [Suspect]
     Active Substance: OLMESARTAN MEDOXOMIL
     Dosage: 1000 INTERNATIONAL UNIT, BID
  232. OLMESARTAN MEDOXOMIL [Suspect]
     Active Substance: OLMESARTAN MEDOXOMIL
     Dosage: 500 IU, Q12H UNK UNK, UNKNOWN (STRENGTH 10)
  233. OLMESARTAN MEDOXOMIL [Suspect]
     Active Substance: OLMESARTAN MEDOXOMIL
     Dosage: 2000 UNK
  234. MINERALS\VITAMINS [Suspect]
     Active Substance: MINERALS\VITAMINS
     Indication: Product used for unknown indication
     Dosage: 500 MG, UNKNOWN
  235. MINERALS\VITAMINS [Suspect]
     Active Substance: MINERALS\VITAMINS
     Dosage: 1000 MG, UNKNOWN
  236. COLESEVELAM [Suspect]
     Active Substance: COLESEVELAM
     Indication: Product used for unknown indication
     Dosage: UNK
  237. COLESEVELAM [Suspect]
     Active Substance: COLESEVELAM
     Indication: Product used for unknown indication
     Dosage: UNK
  238. HERBALS\PHENYL SALICYLATE [Suspect]
     Active Substance: HERBALS\PHENYL SALICYLATE
     Indication: Bronchitis
     Dosage: 10 GTT DROP(S), ROUTE: UNKNOWN
  239. HERBALS\PHENYL SALICYLATE [Suspect]
     Active Substance: HERBALS\PHENYL SALICYLATE
     Indication: Asthma
     Dosage: 10 GTT DROPS, QD
  240. HERBALS\PHENYL SALICYLATE [Suspect]
     Active Substance: HERBALS\PHENYL SALICYLATE
     Dosage: 1 DOSAGE FORM, QD (10 DROPS BID)
  241. HERBALS\PHENYL SALICYLATE [Suspect]
     Active Substance: HERBALS\PHENYL SALICYLATE
     Dosage: 10 DROP (1/12 MILLILITRE) DAILY
  242. HERBALS\PHENYL SALICYLATE [Suspect]
     Active Substance: HERBALS\PHENYL SALICYLATE
     Dosage: 10 DROP (1/12 MILLILITRE) DAILY
  243. HERBALS\PHENYL SALICYLATE [Suspect]
     Active Substance: HERBALS\PHENYL SALICYLATE
     Dosage: 10 GTT DROPS, QD
  244. HERBALS\PHENYL SALICYLATE [Suspect]
     Active Substance: HERBALS\PHENYL SALICYLATE
     Dosage: 10 GTT DROPS, QD
  245. HERBALS\PHENYL SALICYLATE [Suspect]
     Active Substance: HERBALS\PHENYL SALICYLATE
     Dosage: 10 GTT DROPS, QD
  246. CALCIUM PANTOTHENATE [Suspect]
     Active Substance: CALCIUM PANTOTHENATE
     Indication: Product use in unapproved indication
     Dosage: 1 DOSAGE FORM, QD (EVERY 8 HRS  )
  247. CALCIUM PANTOTHENATE [Suspect]
     Active Substance: CALCIUM PANTOTHENATE
     Indication: Product used for unknown indication
     Dosage: UNK UNK, UNKNOWN (2-0-1) TID
  248. SOAP [Suspect]
     Active Substance: SOAP
     Indication: Bronchitis
     Dosage: ROUTE: UNKNOWN
  249. RIVAROXABAN [Suspect]
     Active Substance: RIVAROXABAN
     Indication: Product used for unknown indication
     Dosage: UNK, ROUTE: UNKNOWN
  250. RIVAROXABAN [Suspect]
     Active Substance: RIVAROXABAN
     Indication: Product used for unknown indication
     Dosage: UNK
  251. RIVAROXABAN [Suspect]
     Active Substance: RIVAROXABAN
     Dosage: UNK, UNKNOWN
  252. RIVAROXABAN [Suspect]
     Active Substance: RIVAROXABAN
     Dosage: UNK
  253. ERGOCALCIFEROL [Suspect]
     Active Substance: ERGOCALCIFEROL
     Indication: Product used for unknown indication
     Dosage: 20000 IU, QW
  254. ERGOCALCIFEROL [Suspect]
     Active Substance: ERGOCALCIFEROL
     Dosage: 2000 IU, QW
  255. ERGOCALCIFEROL [Suspect]
     Active Substance: ERGOCALCIFEROL
     Dosage: UNK, ROUTE: UNKNOWN
  256. ERGOCALCIFEROL [Suspect]
     Active Substance: ERGOCALCIFEROL
     Dosage: 1 DF, QW
  257. ERGOCALCIFEROL [Suspect]
     Active Substance: ERGOCALCIFEROL
     Dosage: UNK UNK, ONCE WEEKLY (20,000 I.E)
  258. ERGOCALCIFEROL [Suspect]
     Active Substance: ERGOCALCIFEROL
     Dosage: 20000 IU
  259. MAGNESIUM ASPARTATE\POTASSIUM ASPARTATE [Suspect]
     Active Substance: MAGNESIUM ASPARTATE\POTASSIUM ASPARTATE
     Indication: Product used for unknown indication
     Dosage: UNK
  260. MAGNESIUM ASPARTATE\POTASSIUM ASPARTATE [Suspect]
     Active Substance: MAGNESIUM ASPARTATE\POTASSIUM ASPARTATE
     Dosage: UNK
  261. MAGNESIUM ASPARTATE\POTASSIUM ASPARTATE [Suspect]
     Active Substance: MAGNESIUM ASPARTATE\POTASSIUM ASPARTATE
     Dosage: UNK, UNKNOWN
  262. CALCIUM PANTOTHENATE [Suspect]
     Active Substance: CALCIUM PANTOTHENATE
     Indication: Product used for unknown indication
     Dosage: UNK UNK, TID (IN 8 HOUR)
  263. CALCIUM PANTOTHENATE [Suspect]
     Active Substance: CALCIUM PANTOTHENATE
     Indication: Product used for unknown indication
     Dosage: UNK UNK, EVERY 8 HRS, ROUTE: UNKNOWN
  264. CALCIUM PANTOTHENATE [Suspect]
     Active Substance: CALCIUM PANTOTHENATE
     Dosage: UNK UNK, EVERY 8 HRS
  265. CALCIUM PANTOTHENATE [Suspect]
     Active Substance: CALCIUM PANTOTHENATE
     Dosage: UNK UNK, TID (IN 8 HOUR), ROUTE: UNKNOWN
  266. CALCIUM PANTOTHENATE [Suspect]
     Active Substance: CALCIUM PANTOTHENATE
     Dosage: UNK UNK, EVERY 8 HRS
  267. CALCIUM PANTOTHENATE [Suspect]
     Active Substance: CALCIUM PANTOTHENATE
     Dosage: UNK UNK, TID (IN  8 HOUR)
  268. CALCIUM PANTOTHENATE [Suspect]
     Active Substance: CALCIUM PANTOTHENATE
     Dosage: UNK, TID
  269. MAGNESIUM OROTATE [Suspect]
     Active Substance: MAGNESIUM OROTATE
     Indication: Product used for unknown indication
     Dosage: UNK, DAILY
  270. MAGNESIUM OROTATE [Suspect]
     Active Substance: MAGNESIUM OROTATE
     Dosage: UNK UNK, QD
  271. MAGNESIUM OROTATE [Suspect]
     Active Substance: MAGNESIUM OROTATE
     Dosage: UNK UNK, ONCE DAILY
  272. MAGNESIUM OROTATE [Suspect]
     Active Substance: MAGNESIUM OROTATE
     Dosage: UNK UNK, UNKNOWN FREQ.(3-2-3)
  273. MAGNESIUM OROTATE [Suspect]
     Active Substance: MAGNESIUM OROTATE
     Dosage: UNK, TID (TID (3-2-3)
  274. MAGNESIUM OROTATE [Suspect]
     Active Substance: MAGNESIUM OROTATE
     Dosage: UNK, TID (TID (3-2-3)
  275. MAGNESIUM OROTATE [Suspect]
     Active Substance: MAGNESIUM OROTATE
     Dosage: UNK UNK, DAILY (TID (3-2-3))
  276. ASPIRIN CALCIUM [Suspect]
     Active Substance: ASPIRIN CALCIUM
     Indication: Product used for unknown indication
     Dosage: UNK
  277. ASPIRIN CALCIUM [Suspect]
     Active Substance: ASPIRIN CALCIUM
     Indication: Product used for unknown indication
     Dosage: UNK, STRENGTH: 500) BID (1-0-1)
  278. ASPIRIN CALCIUM [Suspect]
     Active Substance: ASPIRIN CALCIUM
     Dosage: UNK
  279. ASPIRIN CALCIUM [Suspect]
     Active Substance: ASPIRIN CALCIUM
     Dosage: UNKNOWN
  280. ASPIRIN CALCIUM [Suspect]
     Active Substance: ASPIRIN CALCIUM
     Dosage: UNK UNK, UNKNOWN
  281. ASPIRIN CALCIUM [Suspect]
     Active Substance: ASPIRIN CALCIUM
     Dosage: UNK UNK, BID (UNK, STRENGTH: 500) BID (1-0-1))
  282. ASPIRIN CALCIUM [Suspect]
     Active Substance: ASPIRIN CALCIUM
     Dosage: UNK (STRENGTH: 100MG)
  283. ASPIRIN CALCIUM [Suspect]
     Active Substance: ASPIRIN CALCIUM
     Dosage: UNK, STRENGTH: 500, BID (1-0-1)
  284. TADALAFIL [Suspect]
     Active Substance: TADALAFIL
     Indication: Product used for unknown indication
     Dosage: UNK
  285. TADALAFIL [Suspect]
     Active Substance: TADALAFIL
     Indication: Product used for unknown indication
     Dosage: UNK
  286. TADALAFIL [Suspect]
     Active Substance: TADALAFIL
     Dosage: UNK
  287. TADALAFIL [Suspect]
     Active Substance: TADALAFIL
     Dosage: UNK (UNK, ROUTE: UNKNOWN)
  288. TADALAFIL [Suspect]
     Active Substance: TADALAFIL
     Dosage: UNK
  289. COLESEVELAM HYDROCHLORIDE [Suspect]
     Active Substance: COLESEVELAM HYDROCHLORIDE
     Indication: Product used for unknown indication
     Dosage: UNK, UNKNOWN FREQ.
  290. COLESEVELAM HYDROCHLORIDE [Suspect]
     Active Substance: COLESEVELAM HYDROCHLORIDE
     Indication: Product used for unknown indication
     Dosage: UNK UNK, UNKNOWN FREQ.
  291. COLESEVELAM HYDROCHLORIDE [Suspect]
     Active Substance: COLESEVELAM HYDROCHLORIDE
     Dosage: UNK (UNK UNK, UNKNOWN FREQ.)
  292. COLESEVELAM HYDROCHLORIDE [Suspect]
     Active Substance: COLESEVELAM HYDROCHLORIDE
     Dosage: UNK UNK, UNKNOWN
  293. COLESEVELAM HYDROCHLORIDE [Suspect]
     Active Substance: COLESEVELAM HYDROCHLORIDE
     Dosage: UNK
  294. COLESEVELAM HYDROCHLORIDE [Suspect]
     Active Substance: COLESEVELAM HYDROCHLORIDE
     Dosage: UNK UNK, UNKNOWN FREQ.
  295. COLESEVELAM HYDROCHLORIDE [Suspect]
     Active Substance: COLESEVELAM HYDROCHLORIDE
     Dosage: UNK UNK, UNKNOWN
  296. COLESEVELAM HYDROCHLORIDE [Suspect]
     Active Substance: COLESEVELAM HYDROCHLORIDE
     Dosage: UNK
  297. COLESEVELAM HYDROCHLORIDE [Suspect]
     Active Substance: COLESEVELAM HYDROCHLORIDE
     Dosage: UNK UNK, UNKNOWN FREQ.
  298. COLESEVELAM HYDROCHLORIDE [Suspect]
     Active Substance: COLESEVELAM HYDROCHLORIDE
     Dosage: UNK (UNK UNK, UNKNOWN FREQ.), UNKNOWN ROUTE
  299. COLESEVELAM HYDROCHLORIDE [Suspect]
     Active Substance: COLESEVELAM HYDROCHLORIDE
     Dosage: UNK UNK, UNKNOWN
  300. TOCOPHEROL [Suspect]
     Active Substance: TOCOPHEROL
     Indication: Product used for unknown indication
  301. TOCOPHEROL [Suspect]
     Active Substance: TOCOPHEROL
     Dosage: 20000 IU, WE (UNK UNK, UNKNOWN Q2W20000 UNK, QW), ROUTE: UNKNOWN
  302. TOCOPHEROL [Suspect]
     Active Substance: TOCOPHEROL
     Dosage: 20000 IU, WE (UNK UNK, UNKNOWN Q2W20000 UNK, QW)
  303. TOCOPHEROL [Suspect]
     Active Substance: TOCOPHEROL
     Dosage: 2000 IU, ROUTE: UNKNOWN
  304. TOCOPHEROL [Suspect]
     Active Substance: TOCOPHEROL
     Dosage: 20000 IU
  305. TOCOPHEROL [Suspect]
     Active Substance: TOCOPHEROL
     Dosage: 20000 IU
  306. TOCOPHEROL [Suspect]
     Active Substance: TOCOPHEROL
     Dosage: 1 DF, QW
  307. TOCOPHEROL [Suspect]
     Active Substance: TOCOPHEROL
     Dosage: 20,000 I.E, ONCE WEEKLY
  308. GINKGO [Suspect]
     Active Substance: GINKGO
     Indication: Product used for unknown indication
     Dosage: UNK BID
  309. GINKGO [Suspect]
     Active Substance: GINKGO
     Dosage: UNK, BID
  310. GINKGO [Suspect]
     Active Substance: GINKGO
     Dosage: UNK UNK, BID ((STRENGTH: 500) BID (1-0-1))
  311. GINKGO [Suspect]
     Active Substance: GINKGO
     Dosage: 500 MG, EVERY 12 HOURS BID (1-0-1)
  312. GINKGO [Suspect]
     Active Substance: GINKGO
     Dosage: UNK, BID
  313. GINKGO [Suspect]
     Active Substance: GINKGO
     Dosage: UNK, BID
  314. ROSUVASTATIN [Suspect]
     Active Substance: ROSUVASTATIN
     Indication: Product used for unknown indication
     Dosage: UNK, ROUTE: UNKNOWN
  315. FLUTICASONE PROPIONATE\SALMETEROL XINAFOATE [Suspect]
     Active Substance: FLUTICASONE PROPIONATE\SALMETEROL XINAFOATE
     Indication: Cough
     Dosage: UNK UNK, UNKNOWN
  316. FLUTICASONE PROPIONATE\SALMETEROL XINAFOATE [Suspect]
     Active Substance: FLUTICASONE PROPIONATE\SALMETEROL XINAFOATE
     Indication: Nasopharyngitis
     Dosage: UNK UNK, UNKNOWN
  317. FLUTICASONE PROPIONATE\SALMETEROL XINAFOATE [Suspect]
     Active Substance: FLUTICASONE PROPIONATE\SALMETEROL XINAFOATE
     Indication: Dyspnoea
     Dosage: UNK UNK, UNKNOWN
  318. FLUTICASONE PROPIONATE\SALMETEROL XINAFOATE [Suspect]
     Active Substance: FLUTICASONE PROPIONATE\SALMETEROL XINAFOATE
     Indication: Dysphonia
     Dosage: UNK UNK, UNKNOWN
  319. FLUTICASONE PROPIONATE\SALMETEROL XINAFOATE [Suspect]
     Active Substance: FLUTICASONE PROPIONATE\SALMETEROL XINAFOATE
     Indication: Pneumothorax
     Dosage: UNK UNK, UNKNOWN
  320. FLUTICASONE PROPIONATE\SALMETEROL XINAFOATE [Suspect]
     Active Substance: FLUTICASONE PROPIONATE\SALMETEROL XINAFOATE
     Indication: Secretion discharge
     Dosage: UNK, ROUTE: RESPIRATORY (INHALATION)
  321. FLUTICASONE PROPIONATE\SALMETEROL XINAFOATE [Suspect]
     Active Substance: FLUTICASONE PROPIONATE\SALMETEROL XINAFOATE
     Indication: Product used for unknown indication
     Dosage: UNK UNK, UNKNOWN
  322. FLUTICASONE PROPIONATE\SALMETEROL XINAFOATE [Suspect]
     Active Substance: FLUTICASONE PROPIONATE\SALMETEROL XINAFOATE
     Indication: Cough
     Dosage: UNK
  323. FLUTICASONE PROPIONATE\SALMETEROL XINAFOATE [Suspect]
     Active Substance: FLUTICASONE PROPIONATE\SALMETEROL XINAFOATE
     Dosage: UNK
  324. FLUTICASONE PROPIONATE\SALMETEROL XINAFOATE [Suspect]
     Active Substance: FLUTICASONE PROPIONATE\SALMETEROL XINAFOATE
     Dosage: UNK UNK, UNKNOWN
  325. FLUTICASONE PROPIONATE\SALMETEROL XINAFOATE [Suspect]
     Active Substance: FLUTICASONE PROPIONATE\SALMETEROL XINAFOATE
     Dosage: UNK UNK, UNKNOWN
  326. FLUTICASONE PROPIONATE\SALMETEROL XINAFOATE [Suspect]
     Active Substance: FLUTICASONE PROPIONATE\SALMETEROL XINAFOATE
     Dosage: UNK UNK, UNKNOWN
  327. DICLOFENAC EPOLAMINE [Suspect]
     Active Substance: DICLOFENAC EPOLAMINE
     Indication: Product used for unknown indication
     Dosage: UNK, UNKNOWN
  328. DICLOFENAC EPOLAMINE [Suspect]
     Active Substance: DICLOFENAC EPOLAMINE
     Dosage: UNK, UNKNOWN
  329. FLUTICASONE PROPIONATE\SALMETEROL XINAFOATE [Suspect]
     Active Substance: FLUTICASONE PROPIONATE\SALMETEROL XINAFOATE
     Indication: Dyspnoea
     Dosage: UNK, ROUTE: RESPIRATORY (INHALATION)
  330. FLUTICASONE PROPIONATE\SALMETEROL XINAFOATE [Suspect]
     Active Substance: FLUTICASONE PROPIONATE\SALMETEROL XINAFOATE
     Indication: Dysphonia
     Dosage: UNK, ROUTE: RESPIRATORY (INHALATION)
  331. FLUTICASONE PROPIONATE\SALMETEROL XINAFOATE [Suspect]
     Active Substance: FLUTICASONE PROPIONATE\SALMETEROL XINAFOATE
     Indication: Nasopharyngitis
     Dosage: UNK, VIANI (FLUTICASONE PROPIONATE,SALMETEROL XINAFOATE)
  332. FLUTICASONE PROPIONATE\SALMETEROL XINAFOATE [Suspect]
     Active Substance: FLUTICASONE PROPIONATE\SALMETEROL XINAFOATE
     Indication: Pneumothorax
     Dosage: UNK, VIANI (FLUTICASONE PROPIONATE,SALMETEROL XINAFOATE)
  333. FLUTICASONE PROPIONATE\SALMETEROL XINAFOATE [Suspect]
     Active Substance: FLUTICASONE PROPIONATE\SALMETEROL XINAFOATE
     Indication: Secretion discharge
  334. FLUTICASONE PROPIONATE\SALMETEROL XINAFOATE [Suspect]
     Active Substance: FLUTICASONE PROPIONATE\SALMETEROL XINAFOATE
     Indication: Cough
  335. FLUTICASONE PROPIONATE\SALMETEROL XINAFOATE [Suspect]
     Active Substance: FLUTICASONE PROPIONATE\SALMETEROL XINAFOATE
     Indication: Pneumothorax
  336. FLUTICASONE PROPIONATE\SALMETEROL XINAFOATE [Suspect]
     Active Substance: FLUTICASONE PROPIONATE\SALMETEROL XINAFOATE
     Indication: Nasopharyngitis
  337. FLUTICASONE PROPIONATE\SALMETEROL XINAFOATE [Suspect]
     Active Substance: FLUTICASONE PROPIONATE\SALMETEROL XINAFOATE
     Indication: Dysphonia
  338. FLUTICASONE PROPIONATE\SALMETEROL XINAFOATE [Suspect]
     Active Substance: FLUTICASONE PROPIONATE\SALMETEROL XINAFOATE
     Indication: Secretion discharge
  339. .ALPHA.-TOCOPHEROL ACETATE, DL- [Suspect]
     Active Substance: .ALPHA.-TOCOPHEROL ACETATE, DL-
     Indication: Product used for unknown indication
     Dosage: 1 DOSAGE FORM, QW
  340. .ALPHA.-TOCOPHEROL ACETATE, DL- [Suspect]
     Active Substance: .ALPHA.-TOCOPHEROL ACETATE, DL-
     Indication: Product used for unknown indication
     Dosage: 1 DOSAGE FORM, QW
  341. .ALPHA.-TOCOPHEROL ACETATE, DL- [Suspect]
     Active Substance: .ALPHA.-TOCOPHEROL ACETATE, DL-
     Dosage: 20000 IU, OW
  342. BISOPROLOL FUMARATE [Suspect]
     Active Substance: BISOPROLOL FUMARATE
     Indication: Product used for unknown indication
     Dosage: 1 DOSAGE FORM RESPIRATORY (INHALATION)
  343. BISOPROLOL FUMARATE [Suspect]
     Active Substance: BISOPROLOL FUMARATE
     Dosage: UNK, DAILY, QD (1-0-0) RESPIRATORY (INHALATION)
     Dates: start: 20201210
  344. BISOPROLOL FUMARATE [Suspect]
     Active Substance: BISOPROLOL FUMARATE
     Dosage: UNK, QD
  345. ALBUTEROL SULFATE [Suspect]
     Active Substance: ALBUTEROL SULFATE
     Indication: Secretion discharge
     Dosage: UNK UNK, UNKNOWN
  346. ALBUTEROL SULFATE [Suspect]
     Active Substance: ALBUTEROL SULFATE
     Indication: Cough
     Dosage: UNK, ROUTE: RESPIRATORY (INHALATION)
  347. ALBUTEROL SULFATE [Suspect]
     Active Substance: ALBUTEROL SULFATE
     Indication: Pneumothorax
     Dosage: UNK UNK, UNKNOWN
  348. ALBUTEROL SULFATE [Suspect]
     Active Substance: ALBUTEROL SULFATE
     Indication: Dyspnoea
     Dosage: UNK UNK, UNKNOWN ROUTE
  349. ALBUTEROL SULFATE [Suspect]
     Active Substance: ALBUTEROL SULFATE
     Indication: Dysphonia
     Dosage: UNK UNK, UNKNOWN
  350. ALBUTEROL SULFATE [Suspect]
     Active Substance: ALBUTEROL SULFATE
     Indication: Nasopharyngitis
     Dosage: UNK UNK, UNKNOWN ROUTE
  351. ALBUTEROL SULFATE [Suspect]
     Active Substance: ALBUTEROL SULFATE
     Indication: Pneumothorax
     Dosage: UNK UNK, UNKNOWN, INHLAED VIA SPACER WITH PAEDIATRIC MASK
  352. ALBUTEROL SULFATE [Suspect]
     Active Substance: ALBUTEROL SULFATE
     Indication: Cough
     Dosage: UNK UNK, UNKNOWN, INHLAED VIA SPACER WITH PAEDIATRIC MASK
  353. ALBUTEROL SULFATE [Suspect]
     Active Substance: ALBUTEROL SULFATE
     Indication: Chest discomfort
     Dosage: UNK
  354. ALBUTEROL SULFATE [Suspect]
     Active Substance: ALBUTEROL SULFATE
     Indication: Productive cough
     Dosage: UNK
  355. ALBUTEROL SULFATE [Suspect]
     Active Substance: ALBUTEROL SULFATE
     Indication: Secretion discharge
     Dosage: UNK UNK, UNKNOWN, INHLAED VIA SPACER WITH PAEDIATRIC MASK ROUTE OF ADMIN (FREE TEXT): RESPIRATORY (INHALATION)
  356. ALBUTEROL SULFATE [Suspect]
     Active Substance: ALBUTEROL SULFATE
     Indication: Dysphonia
     Dosage: UNK UNK, UNKNOWN, INHLAED VIA SPACER WITH PAEDIATRIC MASK
  357. ALBUTEROL SULFATE [Suspect]
     Active Substance: ALBUTEROL SULFATE
     Indication: Product used for unknown indication
  358. ALBUTEROL SULFATE [Suspect]
     Active Substance: ALBUTEROL SULFATE
     Indication: Nasopharyngitis
  359. TAMSULOSIN [Suspect]
     Active Substance: TAMSULOSIN
     Indication: Product used for unknown indication
     Dosage: UNK
  360. TAMSULOSIN [Suspect]
     Active Substance: TAMSULOSIN
     Dosage: UNK UNK, UNKNOWN
  361. TAMSULOSIN [Suspect]
     Active Substance: TAMSULOSIN
     Dosage: UNK
  362. TAMSULOSIN [Suspect]
     Active Substance: TAMSULOSIN
     Dosage: UNK UNK, UNKNOWN
  363. TAMSULOSIN [Suspect]
     Active Substance: TAMSULOSIN
     Dosage: UNK
  364. TAMSULOSIN [Suspect]
     Active Substance: TAMSULOSIN
     Dosage: UNK
  365. CRESTOR [Suspect]
     Active Substance: ROSUVASTATIN CALCIUM
     Indication: Product used for unknown indication
     Dosage: UNK, ROUTE: UNKNOWN
  366. MAGNESIUM GLUCONATE [Suspect]
     Active Substance: MAGNESIUM GLUCONATE
     Indication: Product used for unknown indication
     Dosage: UNKNOWN ROUTE
  367. MAGNESIUM GLUCONATE [Suspect]
     Active Substance: MAGNESIUM GLUCONATE
     Indication: Product used for unknown indication
     Dosage: UNKNOWN
  368. MAGNESIUM GLUCONATE [Suspect]
     Active Substance: MAGNESIUM GLUCONATE
     Dosage: UNKNOWN
  369. MAGNESIUM GLUCONATE [Suspect]
     Active Substance: MAGNESIUM GLUCONATE
     Dosage: UNKNOWN
  370. ALIROCUMAB [Suspect]
     Active Substance: ALIROCUMAB
     Indication: Product used for unknown indication
     Dosage: UNK
  371. GINKGO [Suspect]
     Active Substance: GINKGO
     Indication: Product used for unknown indication
     Dosage: 1000 MG, BID (INTERVAL: 1 DAY) (UNK, STRENGTH: 500); UNKNOWN ROUTE
  372. FLUTICASONE PROPIONATE [Suspect]
     Active Substance: FLUTICASONE PROPIONATE
     Indication: Dyspnoea
     Dosage: ROUTE: UNKNOWN
  373. FLUTICASONE PROPIONATE [Suspect]
     Active Substance: FLUTICASONE PROPIONATE
     Indication: Cough
     Dosage: ROUTE: UNKNOWN
  374. FLUTICASONE PROPIONATE [Suspect]
     Active Substance: FLUTICASONE PROPIONATE
     Indication: Dysphonia
  375. FLUTICASONE PROPIONATE [Suspect]
     Active Substance: FLUTICASONE PROPIONATE
     Indication: Secretion discharge
  376. FLUTICASONE PROPIONATE [Suspect]
     Active Substance: FLUTICASONE PROPIONATE
     Indication: Pneumothorax
  377. FLUTICASONE PROPIONATE [Suspect]
     Active Substance: FLUTICASONE PROPIONATE
     Indication: Nasopharyngitis
  378. MOMETASONE FUROATE [Suspect]
     Active Substance: MOMETASONE FUROATE
     Indication: Product used for unknown indication
     Dosage: 2 DOSAGE FORM, DAILY(1 IN 0.5 DAY)
  379. MOMETASONE FUROATE [Suspect]
     Active Substance: MOMETASONE FUROATE
     Dosage: UNK, PRN
  380. MOMETASONE FUROATE [Suspect]
     Active Substance: MOMETASONE FUROATE
     Dosage: DAILY 2 PUFF(S), BID
  381. MOMETASONE FUROATE [Suspect]
     Active Substance: MOMETASONE FUROATE
     Dosage: 2 DOSAGE FORM, BID (2 PUFF(S), BID 1-0-1)
  382. MOMETASONE FUROATE [Suspect]
     Active Substance: MOMETASONE FUROATE
     Dosage: 2 DOSAGE FORM, BID (2 PUFF(S), BID 1-0-1)
  383. MOMETASONE FUROATE [Suspect]
     Active Substance: MOMETASONE FUROATE
     Dosage: 2 DOSAGE FORM, BID (2 PUFF(S), BID 1-0-1)
  384. MOMETASONE FUROATE [Suspect]
     Active Substance: MOMETASONE FUROATE
     Dosage: UNK
  385. MOMETASONE FUROATE [Suspect]
     Active Substance: MOMETASONE FUROATE
     Dosage: DAILY 2 PUFF(S), BID
  386. MOMETASONE FUROATE [Suspect]
     Active Substance: MOMETASONE FUROATE
     Dosage: 2 DOSAGE FORM, BID (2 PUFF(S), BID 1-0-1)
  387. MOMETASONE FUROATE [Suspect]
     Active Substance: MOMETASONE FUROATE
     Dosage: 2 DOSAGE FORM, DAILY(1 IN 0.5 DAY)
  388. MOMETASONE FUROATE [Suspect]
     Active Substance: MOMETASONE FUROATE
     Dosage: UNK
  389. MOMETASONE FUROATE [Suspect]
     Active Substance: MOMETASONE FUROATE
     Dosage: 2 DOSAGE FORM, BID ( (2 PUFF(S), BID 1-0-1)
  390. MOMETASONE FUROATE [Suspect]
     Active Substance: MOMETASONE FUROATE
     Dosage: 2 DOSAGE FORM, BID (2 PUFF(S), BID 1-0-1))
  391. ACETIC ACID\DELTAMETHRIN [Suspect]
     Active Substance: ACETIC ACID\DELTAMETHRIN
     Indication: Product used for unknown indication
     Dosage: 1000 INTERNATIONAL UNIT, BID
  392. ACETIC ACID\DELTAMETHRIN [Suspect]
     Active Substance: ACETIC ACID\DELTAMETHRIN
     Dosage: 1000 IU
  393. ACETIC ACID\DELTAMETHRIN [Suspect]
     Active Substance: ACETIC ACID\DELTAMETHRIN
     Dosage: 500 IU(ROUTE: UNKNOWN )
  394. ACETIC ACID\DELTAMETHRIN [Suspect]
     Active Substance: ACETIC ACID\DELTAMETHRIN
     Dosage: 500 INTERNATIONAL UNIT
  395. ACETIC ACID\DELTAMETHRIN [Suspect]
     Active Substance: ACETIC ACID\DELTAMETHRIN
     Dosage: 1000 IU(UNK (STRENGTH: 10), ROUTE: UNKNOWN  )
  396. ACETIC ACID\DELTAMETHRIN [Suspect]
     Active Substance: ACETIC ACID\DELTAMETHRIN
     Dosage: 1000 IU
  397. CALCIUM [Suspect]
     Active Substance: CALCIUM
     Indication: Product used for unknown indication
     Dosage: UNKNOWN ROUTE
  398. CALCIUM [Suspect]
     Active Substance: CALCIUM
     Dosage: 1000 MG
  399. CALCIUM [Suspect]
     Active Substance: CALCIUM
     Dosage: 500 MILLIGRAM
  400. CALCIUM [Suspect]
     Active Substance: CALCIUM
     Dosage: UNK UNK, UNKNOWN BID (STRENGTH: 500) BID (1-0-1)
  401. CALCIUM [Suspect]
     Active Substance: CALCIUM
     Dosage: UNK UNK, UNKNOWN BID (STRENGTH: 500) BID (1-0-1)
  402. CALCIUM [Suspect]
     Active Substance: CALCIUM
     Dosage: 1000 MG
  403. CALCIUM [Suspect]
     Active Substance: CALCIUM
     Dosage: UNK UNK, UNKNOWN BID (STRENGTH: 500) BID (1-0-1)
  404. CALCIUM [Suspect]
     Active Substance: CALCIUM
     Dosage: 1000 MILLIGRAM
  405. CALCIUM CARBONATE [Suspect]
     Active Substance: CALCIUM CARBONATE
     Indication: Product used for unknown indication
     Dosage: UNK
  406. CALCIUM CARBONATE [Suspect]
     Active Substance: CALCIUM CARBONATE
     Indication: Product used for unknown indication
     Dosage: UNK UNK, UNKNOWN FREQ. (UNK (1 IN 1.5 DAY UNK, CALCIUM HEXAL (CALCIUM CARBONATE))
  407. CALCIUM CARBONATE [Suspect]
     Active Substance: CALCIUM CARBONATE
     Dosage: UNK (1 IN 1.5 DAY UNK, CALCIUM HEXAL (CALCIUM CARBONATE))
  408. CALCIUM CARBONATE [Suspect]
     Active Substance: CALCIUM CARBONATE
     Dosage: 500 MG, BID (1000 MILLIGRAM(S) (500 MILLIGRAM(S), 1 IN 12 HOUR)
  409. CALCIUM CARBONATE [Suspect]
     Active Substance: CALCIUM CARBONATE
     Dosage: 1000 MG
  410. CALCIUM CARBONATE [Suspect]
     Active Substance: CALCIUM CARBONATE
     Dosage: UNK ,500 MG BID (1)
  411. CALCIUM CARBONATE [Suspect]
     Active Substance: CALCIUM CARBONATE
     Dosage: 1000 MG, UNKNOWN
  412. CALCIUM CARBONATE [Suspect]
     Active Substance: CALCIUM CARBONATE
     Dosage: 500 MG, BID
  413. AMBROXOL [Suspect]
     Active Substance: AMBROXOL
     Indication: Product used for unknown indication
     Dosage: UNK, ROUTE: UNKNOWN
  414. CLOPIDOGREL [Suspect]
     Active Substance: CLOPIDOGREL BISULFATE
     Indication: Product used for unknown indication
     Dosage: UNK, BID
  415. CLOPIDOGREL [Suspect]
     Active Substance: CLOPIDOGREL BISULFATE
     Dosage: UNK UNK, DAILY  BID (1-0-1)
  416. CLOPIDOGREL [Suspect]
     Active Substance: CLOPIDOGREL BISULFATE
     Dosage: UNK (UNK, QD, (DAILY BID (1-0-1)))
  417. CLOPIDOGREL [Suspect]
     Active Substance: CLOPIDOGREL BISULFATE
     Dosage: UNK, QD (UNK UNK, DAILY BID (1-0-1))
  418. CIALIS [Suspect]
     Active Substance: TADALAFIL
     Indication: Product used for unknown indication
     Dosage: UNK
  419. CIALIS [Suspect]
     Active Substance: TADALAFIL
     Indication: Product used for unknown indication
     Dosage: UNK
  420. CIALIS [Suspect]
     Active Substance: TADALAFIL
     Dosage: UNK
  421. CIALIS [Suspect]
     Active Substance: TADALAFIL
     Dosage: UNK
  422. CIALIS [Suspect]
     Active Substance: TADALAFIL
     Dosage: UNK, UNKNOWN (3-2-3)
  423. CIALIS [Suspect]
     Active Substance: TADALAFIL
     Dosage: UNK, UNKNOWN (3-2-3)
  424. CIALIS [Suspect]
     Active Substance: TADALAFIL
     Dosage: UNK UNK, DAILY (TID (3-2-3))
  425. CIALIS [Suspect]
     Active Substance: TADALAFIL
     Dosage: UNK
  426. FLUTICASONE [Suspect]
     Active Substance: FLUTICASONE
     Indication: Dysphonia
     Dosage: ROUTE: UNKNOWN
  427. SALMETEROL [Suspect]
     Active Substance: SALMETEROL
     Indication: Nasopharyngitis
     Dosage: UNK
  428. SALMETEROL [Suspect]
     Active Substance: SALMETEROL
     Indication: Dyspnoea
     Dosage: UNK
  429. SALMETEROL [Suspect]
     Active Substance: SALMETEROL
     Indication: Product used for unknown indication
  430. SALMETEROL [Suspect]
     Active Substance: SALMETEROL
     Indication: Pneumothorax
  431. SALMETEROL [Suspect]
     Active Substance: SALMETEROL
     Indication: Secretion discharge
  432. SALMETEROL [Suspect]
     Active Substance: SALMETEROL
     Indication: Secretion discharge
  433. SALMETEROL [Suspect]
     Active Substance: SALMETEROL
     Indication: Pneumothorax
  434. IBUPROFEN [Suspect]
     Active Substance: IBUPROFEN
     Indication: Product used for unknown indication
  435. VITAMIN E [Suspect]
     Active Substance: .ALPHA.-TOCOPHEROL
     Indication: Product used for unknown indication
     Dosage: 2000 IU, QW
  436. VITAMIN E [Suspect]
     Active Substance: .ALPHA.-TOCOPHEROL
     Dosage: 20000 IU, QW
  437. VITAMIN E [Suspect]
     Active Substance: .ALPHA.-TOCOPHEROL
     Dosage: 1 DOSAGE FORM, QW
  438. SOAP [Suspect]
     Active Substance: SOAP
     Indication: Dysphonia
     Dosage: 10 GTT DROPS, QD, (DROP (1/12 MILLILITRE), (10 DRP, QD) TID CUTANEOUS EMULSION
  439. SOAP [Suspect]
     Active Substance: SOAP
     Indication: Cough
  440. SOAP [Suspect]
     Active Substance: SOAP
     Indication: Pneumothorax
  441. SOAP [Suspect]
     Active Substance: SOAP
     Indication: Nasopharyngitis
  442. SOAP [Suspect]
     Active Substance: SOAP
     Indication: Dyspnoea
  443. SOAP [Suspect]
     Active Substance: SOAP
     Indication: Bronchitis
  444. SOAP [Suspect]
     Active Substance: SOAP
     Indication: Product used for unknown indication
  445. SOAP [Suspect]
     Active Substance: SOAP
     Indication: Asthma
  446. CLOPIDOGREL BISULFATE [Suspect]
     Active Substance: CLOPIDOGREL BISULFATE
     Indication: Product used for unknown indication
     Dosage: 1 DF, BID
  447. BISOPROLOL FUMARATE [Suspect]
     Active Substance: BISOPROLOL FUMARATE
     Indication: Product used for unknown indication
     Dosage: 1 DOSAGE FORM, RESPIRATORY (INHALATION)
     Dates: end: 20201210
  448. CLOPIDOGREL BISULFATE [Suspect]
     Active Substance: CLOPIDOGREL BISULFATE
     Indication: Product used for unknown indication
     Dosage: UNK
  449. CLOPIDOGREL BISULFATE [Suspect]
     Active Substance: CLOPIDOGREL BISULFATE
     Dosage: UNK
  450. GINKGO [Suspect]
     Active Substance: GINKGO
     Indication: Product used for unknown indication
     Dosage: UNK
  451. GINKGO [Suspect]
     Active Substance: GINKGO
     Dosage: UNK, STRENGTH: 500) BID (1-0-1) BID
  452. GINKGO [Suspect]
     Active Substance: GINKGO
     Dosage: UNK UNK, UNKNOWN
  453. GINKGO [Suspect]
     Active Substance: GINKGO
     Dosage: UNK, STRENGTH: 500) BID (1-0-1)BID
  454. Calcium carbonate; Calcium lactate gluconate [Concomitant]
     Indication: Product used for unknown indication
     Dosage: ROUTE: UNKNOWN
  455. Calcium carbonate; Calcium lactate gluconate [Concomitant]
     Dosage: 500 MG, BID, ROUTE: UNKNOWN
  456. CIALIS [Concomitant]
     Active Substance: TADALAFIL
     Indication: Product used for unknown indication
     Dosage: UNK
  457. CIALIS [Concomitant]
     Active Substance: TADALAFIL
     Dosage: UNKNOWN ROUTE
  458. CIALIS [Concomitant]
     Active Substance: TADALAFIL
     Dosage: UNK(UNK UNK, UNKNOWN  )
  459. CIALIS [Concomitant]
     Active Substance: TADALAFIL
     Dosage: UNKNOWN ROUTE
  460. PEPPERMINT OIL [Concomitant]
     Active Substance: PEPPERMINT OIL
     Indication: Product used for unknown indication
     Dosage: UNK
  461. PEPPERMINT OIL [Concomitant]
     Active Substance: PEPPERMINT OIL
     Dosage: UNK
  462. PEPPERMINT OIL [Concomitant]
     Active Substance: PEPPERMINT OIL
     Dosage: UNK
  463. PEPPERMINT OIL [Concomitant]
     Active Substance: PEPPERMINT OIL
     Dosage: UNK
  464. PEPPERMINT OIL [Concomitant]
     Active Substance: PEPPERMINT OIL
     Dosage: UNK, UNKNOWN
  465. CALCIUM CARBONATE [Concomitant]
     Active Substance: CALCIUM CARBONATE
     Indication: Product used for unknown indication
     Dosage: UNK
  466. REPATHA [Concomitant]
     Active Substance: EVOLOCUMAB
     Indication: Product used for unknown indication
     Dosage: 1 DOSAGE FORM, WEEKLY (1/W) 1 DF, QW
  467. REPATHA [Concomitant]
     Active Substance: EVOLOCUMAB
     Indication: Product used for unknown indication
     Dosage: 1 DOSAGE FORM, QW (1 DF, WE (1 DF, QW), PRE-FILLED SYRINGE), ROUTE: UNKNOWN
  468. REPATHA [Concomitant]
     Active Substance: EVOLOCUMAB
     Dosage: UNK, QW
  469. REPATHA [Concomitant]
     Active Substance: EVOLOCUMAB
     Dosage: 1 DOSAGE FORM (1 DF (1 IN 56 HOUR)), ROUTE: UNKNOWN
  470. REPATHA [Concomitant]
     Active Substance: EVOLOCUMAB
     Dosage: 1 DOSAGE FORM, QW (1 DF, WE (1 IN 1 WEEK)), ROUTE: UNKNOWN
  471. REPATHA [Concomitant]
     Active Substance: EVOLOCUMAB
     Dosage: 1 IN 56 HOUR
  472. REPATHA [Concomitant]
     Active Substance: EVOLOCUMAB
     Dosage: 1 DF, WE (1 DF, QW) (1 IN 1 WEEK)
  473. REPATHA [Concomitant]
     Active Substance: EVOLOCUMAB
     Dosage: 1 DOSAGE FORM (1 DF (1 IN 56 HOUR))
  474. REPATHA [Concomitant]
     Active Substance: EVOLOCUMAB
     Dosage: 1 DOSAGE FORM, QW (1 DF, WE (1 IN 1 WEEK))
  475. REPATHA [Concomitant]
     Active Substance: EVOLOCUMAB
     Dosage: UNK, Q3W
  476. EVOLOCUMAB [Concomitant]
     Active Substance: EVOLOCUMAB
     Indication: Product used for unknown indication
     Dosage: UNK, Q3W
  477. EVOLOCUMAB [Concomitant]
     Active Substance: EVOLOCUMAB
     Indication: Product used for unknown indication
     Dosage: UNK, Q3W
  478. EVOLOCUMAB [Concomitant]
     Active Substance: EVOLOCUMAB
     Dosage: UNK, ROUTE: UNKNOWN
  479. EVOLOCUMAB [Concomitant]
     Active Substance: EVOLOCUMAB
     Dosage: 1 DOSAGE FORM, QW, ROUTE: UNKNOWN
  480. EVOLOCUMAB [Concomitant]
     Active Substance: EVOLOCUMAB
     Dosage: UNK, Q3W
  481. AMBROXOL HYDROCHLORIDE [Concomitant]
     Active Substance: AMBROXOL HYDROCHLORIDE
     Indication: Product used for unknown indication
     Dosage: UNK
  482. AMBROXOL HYDROCHLORIDE [Concomitant]
     Active Substance: AMBROXOL HYDROCHLORIDE
     Indication: Product used for unknown indication
     Dosage: UNK, UNKNOWN
  483. AMBROXOL HYDROCHLORIDE [Concomitant]
     Active Substance: AMBROXOL HYDROCHLORIDE
     Dosage: UNK UNK, UNKNOWN FREQ.
  484. AMBROXOL HYDROCHLORIDE [Concomitant]
     Active Substance: AMBROXOL HYDROCHLORIDE
     Dosage: UNK
  485. AMBROXOL HYDROCHLORIDE [Concomitant]
     Active Substance: AMBROXOL HYDROCHLORIDE
     Dosage: UNK
  486. HERBALS\PHENYL SALICYLATE [Concomitant]
     Active Substance: HERBALS\PHENYL SALICYLATE
     Indication: Bronchitis
     Dosage: 10 GTT DROPS, QD
  487. HERBALS\PHENYL SALICYLATE [Concomitant]
     Active Substance: HERBALS\PHENYL SALICYLATE
     Indication: Asthma
  488. OLMESARTAN MEDOXOMIL [Concomitant]
     Active Substance: OLMESARTAN MEDOXOMIL
     Indication: Product used for unknown indication
     Dosage: UNK
  489. EUCALYPTUS GLOBULUS LEAF [Concomitant]
     Active Substance: EUCALYPTUS GLOBULUS LEAF
     Indication: Product used for unknown indication
     Dosage: UNK
  490. PREDNISOLONE [Concomitant]
     Active Substance: PREDNISOLONE
     Indication: Product used for unknown indication
     Dosage: UNK
  491. PREDNISOLONE [Concomitant]
     Active Substance: PREDNISOLONE
     Dosage: UNK UNK, OTHER (FOR 6 DAYS)
  492. PREDNISOLONE [Concomitant]
     Active Substance: PREDNISOLONE
     Dosage: UNK UNK, OTHER (FOR 6 DAYS)
  493. PREDNISOLONE [Concomitant]
     Active Substance: PREDNISOLONE
     Dosage: UNK
  494. PREDNISOLONE [Concomitant]
     Active Substance: PREDNISOLONE
     Dosage: OTHER FOR 6 DAYS
  495. PREDNISOLONE [Concomitant]
     Active Substance: PREDNISOLONE
     Dosage: OTHER FOR 6 DAYS
  496. PREDNISOLONE [Concomitant]
     Active Substance: PREDNISOLONE
     Dosage: UNK UNK, OTHER (FOR 6 DAYS)
  497. PREDNISOLONE [Concomitant]
     Active Substance: PREDNISOLONE
     Dosage: UNK UNK, OTHER (FOR 6 DAYS)
  498. PREDNISOLONE [Concomitant]
     Active Substance: PREDNISOLONE
     Dosage: UNK UNK, UNKNOWN
  499. PREDNISOLONE [Concomitant]
     Active Substance: PREDNISOLONE
     Dosage: UNK UNK, UNKNOWN
  500. FLUTICASONE PROPIONATE\SALMETEROL XINAFOATE [Concomitant]
     Active Substance: FLUTICASONE PROPIONATE\SALMETEROL XINAFOATE
     Indication: Pneumothorax
     Dosage: UNK RESPIRATORY (INHALATION)
  501. FLUTICASONE PROPIONATE\SALMETEROL XINAFOATE [Concomitant]
     Active Substance: FLUTICASONE PROPIONATE\SALMETEROL XINAFOATE
     Indication: Pneumothorax
  502. FLUTICASONE PROPIONATE\SALMETEROL XINAFOATE [Concomitant]
     Active Substance: FLUTICASONE PROPIONATE\SALMETEROL XINAFOATE
     Indication: Secretion discharge
  503. FLUTICASONE PROPIONATE\SALMETEROL XINAFOATE [Concomitant]
     Active Substance: FLUTICASONE PROPIONATE\SALMETEROL XINAFOATE
     Indication: Dysphonia
  504. FLUTICASONE PROPIONATE\SALMETEROL XINAFOATE [Concomitant]
     Active Substance: FLUTICASONE PROPIONATE\SALMETEROL XINAFOATE
     Indication: Dysphonia
  505. FLUTICASONE PROPIONATE\SALMETEROL XINAFOATE [Concomitant]
     Active Substance: FLUTICASONE PROPIONATE\SALMETEROL XINAFOATE
     Indication: Dyspnoea
  506. FLUTICASONE PROPIONATE\SALMETEROL XINAFOATE [Concomitant]
     Active Substance: FLUTICASONE PROPIONATE\SALMETEROL XINAFOATE
     Indication: Nasopharyngitis
  507. FLUTICASONE PROPIONATE\SALMETEROL XINAFOATE [Concomitant]
     Active Substance: FLUTICASONE PROPIONATE\SALMETEROL XINAFOATE
     Indication: Cough
  508. FLUTICASONE PROPIONATE\SALMETEROL XINAFOATE [Concomitant]
     Active Substance: FLUTICASONE PROPIONATE\SALMETEROL XINAFOATE
     Indication: Secretion discharge
  509. FLUTICASONE PROPIONATE\SALMETEROL XINAFOATE [Concomitant]
     Active Substance: FLUTICASONE PROPIONATE\SALMETEROL XINAFOATE
     Indication: Nasopharyngitis

REACTIONS (25)
  - Atrial fibrillation [Recovered/Resolved]
  - Brain natriuretic peptide increased [Unknown]
  - Fractional exhaled nitric oxide increased [Recovered/Resolved]
  - Sensation of foreign body [Unknown]
  - Dyspnoea [Unknown]
  - Obstructive sleep apnoea syndrome [Unknown]
  - Secretion discharge [Unknown]
  - Dyspnoea exertional [Unknown]
  - Wheezing [Unknown]
  - Dysphonia [Not Recovered/Not Resolved]
  - Eosinophilia [Unknown]
  - Cardiac disorder [Unknown]
  - Increased upper airway secretion [Unknown]
  - Pneumothorax [Not Recovered/Not Resolved]
  - Cough [Not Recovered/Not Resolved]
  - Bronchospasm [Unknown]
  - Exostosis [Unknown]
  - Foreign body in throat [Unknown]
  - Plantar fasciitis [Unknown]
  - Nasopharyngitis [Unknown]
  - Muscle spasms [Unknown]
  - Obstructive airways disorder [Unknown]
  - Chest discomfort [Not Recovered/Not Resolved]
  - Myoglobin blood increased [Unknown]
  - Coronary artery disease [Unknown]

NARRATIVE: CASE EVENT DATE: 20200320
